FAERS Safety Report 24614258 (Version 3)
Quarter: 2024Q4

REPORT INFORMATION
  Report Type: Report from Study
  Country: US (occurrence: US)
  Receive Date: 20241113
  Receipt Date: 20241231
  Transmission Date: 20250114
  Serious: Yes (Death, Other)
  Sender: TAKEDA
  Company Number: US-TAKEDA-2024TUS112829

PATIENT
  Age: 33 Year
  Sex: Male

DRUGS (1)
  1. PONATINIB [Suspect]
     Active Substance: PONATINIB
     Indication: Acute lymphocytic leukaemia
     Dosage: 30 MILLIGRAM, QD

REACTIONS (5)
  - Death [Fatal]
  - Pneumonia [Unknown]
  - Emotional disorder [Unknown]
  - Diarrhoea [Unknown]
  - Asthenia [Unknown]

NARRATIVE: CASE EVENT DATE: 20241227
